FAERS Safety Report 17718328 (Version 1)
Quarter: 2020Q2

REPORT INFORMATION
  Report Type: Spontaneous
  Country: US (occurrence: US)
  Receive Date: 20200428
  Receipt Date: 20200428
  Transmission Date: 20200714
  Serious: Yes (Other)
  Sender: FDA-Public Use
  Company Number: US-AMERICAN REGENT INC-2020000923

PATIENT
  Age: 66 Year
  Sex: Female

DRUGS (1)
  1. ADENOSINE INJECTION, USP (6404-10) [Suspect]
     Active Substance: ADENOSINE
     Indication: CORONARY NO-REFLOW PHENOMENON
     Dosage: UNK
     Route: 022

REACTIONS (6)
  - Incorrect route of product administration [Unknown]
  - Ventricular fibrillation [Recovered/Resolved]
  - Coronary no-reflow phenomenon [Recovered/Resolved]
  - Drug ineffective for unapproved indication [Recovered/Resolved]
  - Ventricular tachycardia [Recovered/Resolved]
  - Product use in unapproved indication [Unknown]
